FAERS Safety Report 22397284 (Version 1)
Quarter: 2023Q2

REPORT INFORMATION
  Report Type: Spontaneous
  Country: US (occurrence: US)
  Receive Date: 20230602
  Receipt Date: 20230602
  Transmission Date: 20230722
  Serious: No
  Sender: FDA-Public Use
  Company Number: US-BRISTOL-MYERS SQUIBB COMPANY-2023-077618

PATIENT
  Age: 76 Year
  Sex: Female
  Weight: 68.7 kg

DRUGS (1)
  1. REVLIMID [Suspect]
     Active Substance: LENALIDOMIDE
     Indication: Plasma cell myeloma
     Dosage: DOSE : UNKNOWN, NOT PROVIDED;     FREQ : 1 QD FOR 21 DAYS OFF 7 DAYS
     Dates: start: 202210

REACTIONS (1)
  - Anaemia [Unknown]
